FAERS Safety Report 10251886 (Version 2)
Quarter: 2014Q3

REPORT INFORMATION
  Report Type: Spontaneous
  Country: US (occurrence: None)
  Receive Date: 20140619
  Receipt Date: 20140707
  Transmission Date: 20150326
  Serious: Yes (Death, Hospitalization)
  Sender: FDA-Public Use
  Company Number: US-001052

PATIENT
  Age: 67 Year
  Sex: Female

DRUGS (2)
  1. GATTEX [Suspect]
     Active Substance: TEDUGLUTIDE\WATER
     Indication: SHORT-BOWEL SYNDROME
     Dosage: (0.35 ML, QD, STREN/VOLUM: 0.35 ML|FREQU: ONCE A DAY SUBCUTANEIOUS)
     Route: 058
     Dates: start: 20140520
  2. SOLUTIONS FOR PARENTERAL NUTRITION ( TO UNKNOWN) [Concomitant]

REACTIONS (1)
  - Pyelonephritis [None]

NARRATIVE: CASE EVENT DATE: 20140524
